FAERS Safety Report 6992097-X (Version None)
Quarter: 2010Q3

REPORT INFORMATION
  Report Type: 
  Country: None (occurrence: None)
  Receive Date: 20100917
  Receipt Date: 20100908
  Transmission Date: 20110219
  Serious: Yes (Other)
  Sender: FDA-Public Use
  Company Number: US-PFIZER INC-2010103702

PATIENT
  Sex: Female

DRUGS (1)
  1. NICOTROL [Suspect]
     Indication: SMOKING CESSATION THERAPY
     Dosage: 10 MG, 3-5 CARTRIDGES A DAY
     Route: 055

REACTIONS (4)
  - DYSPHAGIA [None]
  - GINGIVAL PAIN [None]
  - ORAL DISCOMFORT [None]
  - ORAL PAIN [None]
